FAERS Safety Report 21379030 (Version 2)
Quarter: 2023Q1

REPORT INFORMATION
  Report Type: Spontaneous
  Country: US (occurrence: US)
  Receive Date: 20220927
  Receipt Date: 20230215
  Transmission Date: 20230417
  Serious: Yes (Hospitalization, Other)
  Sender: FDA-Public Use
  Company Number: US-BRISTOL-MYERS SQUIBB COMPANY-2022-111919

PATIENT
  Age: 75 Year
  Sex: Male
  Weight: 101.6 kg

DRUGS (1)
  1. ELIQUIS [Suspect]
     Active Substance: APIXABAN
     Indication: Embolism venous
     Route: 048
     Dates: start: 2021

REACTIONS (6)
  - COVID-19 [Recovered/Resolved]
  - Chronic obstructive pulmonary disease [Unknown]
  - Asthma [Unknown]
  - Deep vein thrombosis [Unknown]
  - Cough [Unknown]
  - Body height decreased [Unknown]

NARRATIVE: CASE EVENT DATE: 20220401
